FAERS Safety Report 24957475 (Version 2)
Quarter: 2025Q1

REPORT INFORMATION
  Report Type: Report from Study
  Country: CA (occurrence: CA)
  Receive Date: 20250212
  Receipt Date: 20250217
  Transmission Date: 20250408
  Serious: Yes (Hospitalization, Other)
  Sender: TAKEDA
  Company Number: CA-TAKEDA-CA202030234

PATIENT
  Sex: Male

DRUGS (13)
  1. ICATIBANT [Suspect]
     Active Substance: ICATIBANT ACETATE
     Indication: Hereditary angioedema with C1 esterase inhibitor deficiency
  2. ICATIBANT [Suspect]
     Active Substance: ICATIBANT ACETATE
     Indication: Hereditary angioedema
  3. TAKHZYRO [Suspect]
     Active Substance: LANADELUMAB-FLYO
     Indication: Product used for unknown indication
  4. BERINERT [Concomitant]
     Active Substance: HUMAN C1-ESTERASE INHIBITOR
  5. DANAZOL [Concomitant]
     Active Substance: DANAZOL
  6. TRAZODONE [Concomitant]
     Active Substance: TRAZODONE HYDROCHLORIDE
  7. INSULIN NOS [Concomitant]
     Active Substance: INSULIN NOS
  8. PANTOPRAZOLE SODIUM [Concomitant]
     Active Substance: PANTOPRAZOLE SODIUM
  9. METOPROLOL [Concomitant]
     Active Substance: METOPROLOL
  10. CRESTOR [Concomitant]
     Active Substance: ROSUVASTATIN CALCIUM
  11. IRON [Concomitant]
     Active Substance: IRON
  12. VITAMIN D [Concomitant]
     Active Substance: VITAMIN D NOS
  13. EFFIENT [Concomitant]
     Active Substance: PRASUGREL HYDROCHLORIDE

REACTIONS (7)
  - Pneumonia [Unknown]
  - Dementia [Not Recovered/Not Resolved]
  - Lung disorder [Not Recovered/Not Resolved]
  - Dysphagia [Unknown]
  - Diarrhoea [Not Recovered/Not Resolved]
  - Abdominal pain upper [Unknown]
  - Vomiting [Unknown]
